FAERS Safety Report 23079126 (Version 1)
Quarter: 2023Q4

REPORT INFORMATION
  Report Type: Spontaneous
  Country: CN (occurrence: CN)
  Receive Date: 20231018
  Receipt Date: 20231018
  Transmission Date: 20240110
  Serious: Yes (Other)
  Sender: FDA-Public Use
  Company Number: CN-PFIZER INC-PV202300169281

PATIENT
  Age: 48 Year
  Sex: Male
  Weight: 62.5 kg

DRUGS (1)
  1. METHOTREXATE SODIUM [Suspect]
     Active Substance: METHOTREXATE SODIUM
     Indication: Allogenic stem cell transplantation
     Dosage: 25 MG, 1X/DAY
     Route: 041
     Dates: start: 20230519, end: 20230519

REACTIONS (3)
  - Oesophageal injury [Unknown]
  - Oesophageal pain [Recovering/Resolving]
  - Off label use [Unknown]

NARRATIVE: CASE EVENT DATE: 20230519
